FAERS Safety Report 10248993 (Version 1)
Quarter: 2014Q2

REPORT INFORMATION
  Report Type: Spontaneous
  Country: GB (occurrence: None)
  Receive Date: 20140618
  Receipt Date: 20140618
  Transmission Date: 20141212
  Serious: Yes (Hospitalization, Disabling)
  Sender: FDA-Public Use
  Company Number: AUR-APL-2014-06378

PATIENT
  Age: 72 Year
  Sex: Female

DRUGS (6)
  1. SIMVASTATIN [Suspect]
     Indication: ACUTE MYOCARDIAL INFARCTION
     Route: 048
     Dates: start: 2013, end: 20140430
  2. ASPIRIN (ACETYLSALICYLIC ACID) [Concomitant]
  3. BISOPROLOL FUMARATE (BISOPROLOL FUMARATE) [Concomitant]
  4. METFORMIN (METFORMIN) [Concomitant]
  5. PRASUGREL (PRASUGREL) [Concomitant]
  6. RAMIPRIL (RAMIPRIL) [Concomitant]

REACTIONS (6)
  - Renal failure acute [None]
  - Liver function test abnormal [None]
  - Drug prescribing error [None]
  - Mobility decreased [None]
  - Myalgia [None]
  - Myopathy [None]
